FAERS Safety Report 25875710 (Version 1)
Quarter: 2025Q4

REPORT INFORMATION
  Report Type: Spontaneous
  Country: US (occurrence: US)
  Receive Date: 20251003
  Receipt Date: 20251003
  Transmission Date: 20260118
  Serious: No
  Sender: ROCHE
  Company Number: US-ROCHE-10000397470

PATIENT
  Age: 78 Year
  Sex: Female
  Weight: 52.16 kg

DRUGS (5)
  1. ACTEMRA [Suspect]
     Active Substance: TOCILIZUMAB
     Indication: Giant cell arteritis
     Dosage: SHE HAD AN INFUSION ON 08-SEP-2025.?NEXT INFUSION OF ACTEMRA ON 07-OCT-2025.
     Route: 042
     Dates: start: 202408
  2. LEVOTHYROXINE [Concomitant]
     Active Substance: LEVOTHYROXINE
     Indication: Hypothyroidism
     Dosage: 1 PILL EVERY MORNING
     Route: 048
  3. PROLIA [Concomitant]
     Active Substance: DENOSUMAB
     Indication: Osteopenia
     Dosage: 1 SHOT EVERY 6 MONTHS
  4. PREDNISONE [Concomitant]
     Active Substance: PREDNISONE
     Indication: Giant cell arteritis
     Dosage: DIFFERENT DOSAGES STEPPED DOWN AS THE MONTHS WENT BY
     Dates: start: 202405, end: 202501
  5. FOSAMAX [Concomitant]
     Active Substance: ALENDRONATE SODIUM

REACTIONS (2)
  - Chronic kidney disease [Unknown]
  - Contusion [Not Recovered/Not Resolved]

NARRATIVE: CASE EVENT DATE: 20250201
